FAERS Safety Report 7487480-2 (Version None)
Quarter: 2011Q1

REPORT INFORMATION
  Report Type: 
  Country: None (occurrence: None)
  Receive Date: 20110309
  Receipt Date: 20101111
  Transmission Date: 20110831
  Serious: No
  Sender: FDA-Public Use
  Company Number: 2010SP060132

PATIENT
  Sex: Female

DRUGS (3)
  1. SAPHRIS [Suspect]
     Indication: BIPOLAR DISORDER
     Dosage: 10 MG; HS
     Dates: start: 20101001
  2. REMERON [Concomitant]
  3. PAMELOR [Suspect]
     Indication: PRODUCT USED FOR UNKNOWN INDICATION
     Dosage: 100 MG; QD

REACTIONS (3)
  - ANTIDEPRESSANT DRUG LEVEL INCREASED [None]
  - DRUG INTERACTION [None]
  - INAPPROPRIATE SCHEDULE OF DRUG ADMINISTRATION [None]
